FAERS Safety Report 24279755 (Version 1)
Quarter: 2024Q3

REPORT INFORMATION
  Report Type: Spontaneous
  Country: TR (occurrence: TR)
  Receive Date: 20240904
  Receipt Date: 20240904
  Transmission Date: 20241017
  Serious: Yes (Hospitalization, Other)
  Sender: NOVO NORDISK
  Company Number: TR-NOVOPROD-1276919

PATIENT
  Sex: Female
  Weight: 78 kg

DRUGS (5)
  1. INSULIN ASPART\INSULIN DEGLUDEC [Suspect]
     Active Substance: INSULIN ASPART\INSULIN DEGLUDEC
     Indication: Type 2 diabetes mellitus
     Dosage: 56 IU, QD (26 IU IN THE MORNING, 30 IU IN THE EVENING)
  2. SYNJARDY [Concomitant]
     Active Substance: EMPAGLIFLOZIN\METFORMIN HYDROCHLORIDE
     Indication: Product used for unknown indication
     Dosage: 1000 MG, BID
  3. IPRATROPIUM BROMIDE [Concomitant]
     Active Substance: IPRATROPIUM BROMIDE\IPRATROPIUM BROMIDE ANHYDROUS
     Indication: Product used for unknown indication
     Dosage: 100 ?G/KG (AS-REQUIRED)
     Route: 055
  4. BREQUAL [Concomitant]
     Indication: Product used for unknown indication
     Dosage: 500 ?G/KG, BID (AS-REQUIRED)
  5. LIPITOR [Concomitant]
     Active Substance: ATORVASTATIN CALCIUM
     Indication: Product used for unknown indication
     Dosage: 267 MG, QD

REACTIONS (3)
  - Localised infection [Unknown]
  - Tympanic membrane perforation [Unknown]
  - Nasal cavity mass [Unknown]
